FAERS Safety Report 7248557-X (Version None)
Quarter: 2011Q1

REPORT INFORMATION
  Report Type: 
  Country: None (occurrence: None)
  Receive Date: 20110128
  Receipt Date: 20110125
  Transmission Date: 20110831
  Serious: Yes (Other)
  Sender: FDA-Public Use
  Company Number: US-ASTRAZENECA-2006UW23637

PATIENT
  Age: 43 Year
  Sex: Male
  Weight: 110.2 kg

DRUGS (20)
  1. ZANAFLEX [Concomitant]
     Dosage: STRENGTH 2 MG, 4 MG
     Dates: start: 20020321
  2. AMBIEN [Concomitant]
     Route: 048
     Dates: start: 20020730
  3. DEPAKOTE [Concomitant]
     Indication: BIPOLAR DISORDER
     Dosage: STRENGTH-250MG, 500MG. DOSE-1000-2000MG DAILY
     Route: 048
     Dates: start: 19970404
  4. CLONIDINE [Concomitant]
     Indication: ANXIETY
     Dosage: 0.2-4 MG
     Route: 048
     Dates: start: 19970407
  5. ZOLOFT [Concomitant]
     Dates: start: 20020617
  6. SEROQUEL [Suspect]
     Route: 048
     Dates: end: 20060301
  7. SEROQUEL [Suspect]
     Route: 048
     Dates: end: 20060301
  8. DEPAKOTE [Concomitant]
     Indication: ANGER
     Dosage: STRENGTH-250MG, 500MG. DOSE-1000-2000MG DAILY
     Route: 048
     Dates: start: 19970404
  9. KLONOPIN [Concomitant]
     Indication: ANXIETY
     Dates: start: 19970407
  10. GABITRIL [Concomitant]
     Dates: start: 20021009
  11. SEROQUEL [Suspect]
     Indication: TRAUMATIC BRAIN INJURY
     Dosage: STRENGTH 25MG, 100MG, 300MG. DOSE 100-300MG DAILY
     Route: 048
     Dates: start: 20010618
  12. ESKALITH [Concomitant]
     Indication: AFFECTIVE DISORDER
     Dosage: 900-1350MG DAILY
     Dates: start: 19970407
  13. LAMICTAL [Concomitant]
     Dates: start: 20001107
  14. SEROQUEL [Suspect]
     Route: 048
     Dates: end: 20060301
  15. ESKALITH [Concomitant]
     Indication: BIPOLAR DISORDER
     Dosage: 900-1350MG DAILY
     Dates: start: 19970407
  16. ESKALITH [Concomitant]
     Indication: ANGER
     Dosage: 900-1350MG DAILY
     Dates: start: 19970407
  17. SEROQUEL [Suspect]
     Indication: BIPOLAR DISORDER
     Dosage: STRENGTH 25MG, 100MG, 300MG. DOSE 100-300MG DAILY
     Route: 048
     Dates: start: 20010618
  18. SEROQUEL [Suspect]
     Indication: DEPRESSION
     Dosage: STRENGTH 25MG, 100MG, 300MG. DOSE 100-300MG DAILY
     Route: 048
     Dates: start: 20010618
  19. DEPAKOTE [Concomitant]
     Indication: AFFECTIVE DISORDER
     Dosage: STRENGTH-250MG, 500MG. DOSE-1000-2000MG DAILY
     Route: 048
     Dates: start: 19970404
  20. NEURONTIN [Concomitant]
     Indication: NEUROPATHY PERIPHERAL
     Dosage: STRENGTH 300MG, 400MG. DOSE 300MG THREE TIMES A DAY
     Dates: start: 20020617

REACTIONS (11)
  - RENAL FAILURE ACUTE [None]
  - NEUROPATHY PERIPHERAL [None]
  - TYPE 2 DIABETES MELLITUS [None]
  - DIABETES MELLITUS [None]
  - DIABETES MELLITUS INADEQUATE CONTROL [None]
  - DIABETIC NEUROPATHY [None]
  - RENAL FAILURE [None]
  - DIABETIC COMA [None]
  - DIABETIC KETOACIDOSIS [None]
  - DIABETIC NEPHROPATHY [None]
  - TYPE 1 DIABETES MELLITUS [None]
